FAERS Safety Report 7605837-3 (Version None)
Quarter: 2011Q3

REPORT INFORMATION
  Report Type: 
  Country: None (occurrence: None)
  Receive Date: 20110713
  Receipt Date: 20110701
  Transmission Date: 20111222
  Serious: Yes (Hospitalization)
  Sender: FDA-Public Use
  Company Number: GB-JNJFOC-20101000852

PATIENT
  Sex: Female
  Weight: 40.2 kg

DRUGS (8)
  1. ONDANSETRON [Concomitant]
  2. ANTIBIOTICS NOS [Concomitant]
     Indication: CROHN'S DISEASE
  3. OMEPRAZOLE [Concomitant]
  4. REMICADE [Suspect]
     Indication: CROHN'S DISEASE
     Route: 042
     Dates: start: 20081208, end: 20090807
  5. AZATHIOPRINE [Suspect]
     Indication: CROHN'S DISEASE
  6. ACETAMINOPHEN [Concomitant]
  7. VITAMIN D [Concomitant]
  8. HUMIRA [Suspect]
     Indication: CROHN'S DISEASE
     Dates: start: 20091002, end: 20100910

REACTIONS (1)
  - CLOSTRIDIAL INFECTION [None]
